FAERS Safety Report 5222295-7 (Version None)
Quarter: 2007Q1

REPORT INFORMATION
  Report Type: 
  Country: None (occurrence: None)
  Receive Date: 20070129
  Receipt Date: 20060724
  Transmission Date: 20070707
  Serious: No
  Sender: FDA-Public Use
  Company Number: US-GLAXOSMITHKLINE-A0613340A

PATIENT
  Age: 48 Year
  Sex: Female

DRUGS (8)
  1. MEPRON [Suspect]
     Indication: BABESIOSIS
     Dosage: 1TSP TWICE PER DAY
     Route: 048
     Dates: start: 20060601, end: 20060701
  2. CEFTIN [Concomitant]
  3. SYNTHROID [Concomitant]
  4. VERAPAMIL [Concomitant]
  5. VITAMIN B COMPLEX CAP [Concomitant]
  6. TILADE [Concomitant]
  7. AZMACORT [Concomitant]
  8. POTASSIUM ACETATE [Concomitant]

REACTIONS (2)
  - EYE PAIN [None]
  - VISION BLURRED [None]
